FAERS Safety Report 4594046-0 (Version None)
Quarter: 2005Q1

REPORT INFORMATION
  Report Type: 
  Country: None (occurrence: None)
  Receive Date: 20050218
  Receipt Date: 20050201
  Transmission Date: 20050727
  Serious: Yes (Other)
  Sender: FDA-Public Use
  Company Number: GBWYE250201DEC04

PATIENT
  Sex: Female

DRUGS (4)
  1. EFFEXOR XR [Suspect]
     Indication: DEPRESSION
     Dosage: 750MG PER DAY, ORAL
     Route: 048
     Dates: start: 20041122, end: 20041126
  2. FEMOSTON           (DYDROGESTERONE/ESTRADIOL) [Concomitant]
  3. TEMAZEPAM [Concomitant]
  4. PAZOLAM (PAZOLAM) [Concomitant]

REACTIONS (10)
  - ACTIVITIES OF DAILY LIVING IMPAIRED [None]
  - DIZZINESS [None]
  - HEADACHE [None]
  - HEPATIC ENZYME INCREASED [None]
  - MALAISE [None]
  - NAUSEA [None]
  - OVERDOSE [None]
  - PALPITATIONS [None]
  - POLYDIPSIA [None]
  - VOMITING [None]
